FAERS Safety Report 10672427 (Version 1)
Quarter: 2014Q4

REPORT INFORMATION
  Report Type: Spontaneous
  Country: US (occurrence: None)
  Receive Date: 20141222
  Receipt Date: 20141222
  Transmission Date: 20150529
  Serious: Yes (Hospitalization)
  Sender: FDA-Public Use
  Company Number: None

PATIENT
  Age: 72 Year
  Sex: Female
  Weight: 56.5 kg

DRUGS (5)
  1. WARFARIN [Concomitant]
     Active Substance: WARFARIN
  2. DEXAMETHASONE. [Concomitant]
     Active Substance: DEXAMETHASONE
  3. BEVACIZUMAB (RTUMAB VEGH) [Suspect]
     Active Substance: BEVACIZUMAB
     Dates: end: 20141027
  4. AMLODIPINE [Concomitant]
     Active Substance: AMLODIPINE BESYLATE
  5. ATORVASTATIN [Concomitant]
     Active Substance: ATORVASTATIN

REACTIONS (4)
  - Mental status changes [None]
  - Cerebrospinal fluid leakage [None]
  - Gait disturbance [None]
  - Cerebral haemorrhage [None]

NARRATIVE: CASE EVENT DATE: 20141107
